FAERS Safety Report 12197064 (Version 1)
Quarter: 2016Q1

REPORT INFORMATION
  Report Type: Spontaneous
  Country: FR (occurrence: FR)
  Receive Date: 20160321
  Receipt Date: 20160321
  Transmission Date: 20160526
  Serious: Yes (Death, Hospitalization, Other)
  Sender: FDA-Public Use
  Company Number: FR-BAXTER-2016BAX012229

PATIENT
  Age: 63 Year
  Sex: Male

DRUGS (15)
  1. BACTRIM [Suspect]
     Active Substance: SULFAMETHOXAZOLE\TRIMETHOPRIM
     Indication: OPPORTUNISTIC INFECTION PROPHYLAXIS
     Dosage: 1 CYCLE
     Route: 048
     Dates: start: 20150916, end: 201510
  2. ENDOXAN 1000 MG, POUDRE POUR SOLUTION INJECTABLE [Suspect]
     Active Substance: CYCLOPHOSPHAMIDE
     Indication: B-CELL LYMPHOMA STAGE IV
     Dosage: FIRST COURSE
     Route: 042
     Dates: start: 201505
  3. MABTHERA [Suspect]
     Active Substance: RITUXIMAB
     Dosage: LAST COURSE
     Route: 042
     Dates: start: 20150916, end: 20150916
  4. PREDNISONE. [Suspect]
     Active Substance: PREDNISONE
     Dosage: LAST COURSE
     Route: 042
     Dates: start: 201509, end: 20150916
  5. RAMIPRIL. [Concomitant]
     Active Substance: RAMIPRIL
     Indication: PRODUCT USED FOR UNKNOWN INDICATION
     Route: 065
  6. REVITALOSE [Concomitant]
     Indication: PRODUCT USED FOR UNKNOWN INDICATION
     Route: 065
  7. MABTHERA [Suspect]
     Active Substance: RITUXIMAB
     Indication: B-CELL LYMPHOMA STAGE IV
     Dosage: FIRST COURSE
     Route: 042
     Dates: start: 201505
  8. PREDNISONE. [Suspect]
     Active Substance: PREDNISONE
     Indication: B-CELL LYMPHOMA STAGE IV
     Dosage: FIRST COURSE
     Route: 042
     Dates: start: 201505
  9. ONCOVIN [Suspect]
     Active Substance: VINCRISTINE SULFATE
     Indication: B-CELL LYMPHOMA STAGE IV
     Dosage: FIRST COURSE
     Route: 042
     Dates: start: 201505
  10. PROCORALAN [Concomitant]
     Active Substance: IVABRADINE
     Indication: PRODUCT USED FOR UNKNOWN INDICATION
     Route: 065
  11. ENDOXAN 1000 MG, POUDRE POUR SOLUTION INJECTABLE [Suspect]
     Active Substance: CYCLOPHOSPHAMIDE
     Dosage: LAST COURSE
     Route: 042
     Dates: start: 20150916, end: 20150916
  12. ONCOVIN [Suspect]
     Active Substance: VINCRISTINE SULFATE
     Dosage: LAST COURSE
     Route: 042
     Dates: start: 20150916, end: 20150916
  13. PREVISCAN [Concomitant]
     Active Substance: FLUINDIONE
     Indication: PRODUCT USED FOR UNKNOWN INDICATION
     Route: 065
  14. LASILIX [Concomitant]
     Active Substance: FUROSEMIDE
     Indication: PRODUCT USED FOR UNKNOWN INDICATION
     Dosage: SCORED TABLET
     Route: 065
  15. ZOPHREN [Concomitant]
     Active Substance: ONDANSETRON
     Indication: PRODUCT USED FOR UNKNOWN INDICATION
     Route: 065

REACTIONS (7)
  - Multiple organ dysfunction syndrome [Fatal]
  - Hepatitis B [Fatal]
  - Condition aggravated [Fatal]
  - Lactic acidosis [Unknown]
  - Coagulopathy [Unknown]
  - Encephalopathy [Unknown]
  - Rectal haemorrhage [Unknown]

NARRATIVE: CASE EVENT DATE: 20151001
